FAERS Safety Report 8564180-9 (Version None)
Quarter: 2012Q3

REPORT INFORMATION
  Report Type: 
  Country: None (occurrence: None)
  Receive Date: 20120803
  Receipt Date: 20120725
  Transmission Date: 20120928
  Serious: Yes (Other)
  Sender: FDA-Public Use
  Company Number: SE-JNJFOC-20120715317

PATIENT
  Age: 65 Year
  Sex: Male

DRUGS (4)
  1. REMICADE [Suspect]
     Dosage: 10TH INFUSION
     Route: 042
     Dates: start: 20120202, end: 20120508
  2. SOLU-CORTEF [Concomitant]
     Indication: PREMEDICATION
     Route: 065
  3. CLEMASTINE FUMARATE [Concomitant]
     Indication: PREMEDICATION
     Route: 065
  4. REMICADE [Suspect]
     Indication: ANKYLOSING SPONDYLITIS
     Dosage: CYCLICAL
     Route: 042

REACTIONS (3)
  - HYPERSENSITIVITY [None]
  - INFUSION RELATED REACTION [None]
  - BUNDLE BRANCH BLOCK LEFT [None]
